FAERS Safety Report 16442102 (Version 1)
Quarter: 2019Q2

REPORT INFORMATION
  Report Type: Report from Study
  Country: None (occurrence: US)
  Receive Date: 20190617
  Receipt Date: 20190617
  Transmission Date: 20190711
  Serious: No
  Sender: FDA-Public Use
  Company Number: US-US WORLDMEDS, LLC-USW201812-001966

PATIENT
  Age: 89 Year
  Sex: Female
  Weight: 132.07 kg

DRUGS (3)
  1. NEUPRO [Concomitant]
     Active Substance: ROTIGOTINE
  2. AZILECT [Concomitant]
     Active Substance: RASAGILINE MESYLATE
  3. APOKYN [Suspect]
     Active Substance: APOMORPHINE HYDROCHLORIDE
     Indication: PARKINSON^S DISEASE
     Route: 058
     Dates: start: 20170424

REACTIONS (1)
  - Fall [Recovered/Resolved]

NARRATIVE: CASE EVENT DATE: 201812
